FAERS Safety Report 5027816-5 (Version None)
Quarter: 2006Q2

REPORT INFORMATION
  Report Type: 
  Country: None (occurrence: None)
  Receive Date: 20060616
  Receipt Date: 20060608
  Transmission Date: 20061013
  Serious: Yes (Other)
  Sender: FDA-Public Use
  Company Number: 2006UW12170

PATIENT
  Sex: Male

DRUGS (2)
  1. ATACAND HCT [Suspect]
     Dosage: CANDESARTAN CILEXETIL  32 MG + HYDROCHLOROTHIAZIDE 12.5 MG
     Route: 048
  2. CATAPRES-TTS DIS [Suspect]
     Dosage: 0.1/24 HR

REACTIONS (5)
  - BRADYCARDIA [None]
  - BRAIN DAMAGE [None]
  - DIABETES MELLITUS NON-INSULIN-DEPENDENT [None]
  - HYPERTENSION [None]
  - SLEEP APNOEA SYNDROME [None]
